FAERS Safety Report 10516944 (Version 1)
Quarter: 2014Q4

REPORT INFORMATION
  Report Type: Spontaneous
  Country: US (occurrence: None)
  Receive Date: 20141003
  Receipt Date: 20141003
  Transmission Date: 20150528
  Serious: Yes (Hospitalization, Other)
  Sender: FDA-Public Use
  Company Number: 1345213

PATIENT
  Age: 61 Year
  Sex: Female
  Weight: 78.02 kg

DRUGS (1)
  1. PEGASYS [Suspect]
     Active Substance: PEGINTERFERON ALFA-2A
     Indication: CHRONIC HEPATITIS
     Route: 058
     Dates: start: 20140128

REACTIONS (1)
  - Influenza [None]

NARRATIVE: CASE EVENT DATE: 20140204
